FAERS Safety Report 14879864 (Version 1)
Quarter: 2018Q2

REPORT INFORMATION
  Report Type: Spontaneous
  Country: US (occurrence: US)
  Receive Date: 20180424
  Receipt Date: 20180424
  Transmission Date: 20180711
  Serious: No
  Sender: FDA-Public Use
  Company Number: None

PATIENT
  Age: 58 Year
  Sex: Female

DRUGS (1)
  1. ETOPOSIDE CAP 50MG [Suspect]
     Active Substance: ETOPOSIDE

REACTIONS (6)
  - Atrial fibrillation [None]
  - Dehydration [None]
  - Vomiting [None]
  - Immunodeficiency [None]
  - Diarrhoea [None]
  - Blood pressure decreased [None]

NARRATIVE: CASE EVENT DATE: 20180424
